FAERS Safety Report 9553783 (Version 1)
Quarter: 2013Q3

REPORT INFORMATION
  Report Type: Spontaneous
  Country: US (occurrence: None)
  Receive Date: 20130924
  Receipt Date: 20130924
  Transmission Date: 20140515
  Serious: No
  Sender: FDA-Public Use
  Company Number: None

PATIENT
  Age: 56 Year
  Sex: Female
  Weight: 63.5 kg

DRUGS (10)
  1. HYDROCODONE [Suspect]
     Indication: RHEUMATOID ARTHRITIS
     Route: 048
     Dates: start: 20100713
  2. HYDROCODONE [Suspect]
     Indication: MULTIPLE SCLEROSIS
     Route: 048
     Dates: start: 20100713
  3. ATACAND [Concomitant]
  4. TOPROL XL [Concomitant]
  5. SEROQUIL [Concomitant]
  6. ASPIRIN [Concomitant]
  7. NITROL TABLETS [Concomitant]
  8. PRENATOL ORGANIC VITAMINS [Concomitant]
  9. GARLIC OIL CAPSULS [Concomitant]
  10. VEGAN PROBIOTICS [Concomitant]

REACTIONS (3)
  - Product physical issue [None]
  - Drug effect decreased [None]
  - Product colour issue [None]
